FAERS Safety Report 5677935-5 (Version None)
Quarter: 2008Q1

REPORT INFORMATION
  Report Type: 
  Country: None (occurrence: None)
  Receive Date: 20080319
  Receipt Date: 20080306
  Transmission Date: 20080703
  Serious: Yes (Death)
  Sender: FDA-Public Use
  Company Number: US022908

PATIENT
  Age: 38 Year
  Sex: Male
  Weight: 102.0593 kg

DRUGS (3)
  1. ACTIQ [Suspect]
     Dosage: 1600 UG ONCE BUCCAL
     Route: 002
     Dates: start: 20060219, end: 20060219
  2. PROTONIX /01263201/ [Concomitant]
  3. CORTICOSTEROID [Concomitant]

REACTIONS (11)
  - CARDIAC ARREST [None]
  - DRUG DEPENDENCE [None]
  - FOAMING AT MOUTH [None]
  - HYPERHIDROSIS [None]
  - NARCOTIC INTOXICATION [None]
  - NASAL MUCOSAL DISCOLOURATION [None]
  - ORAL MUCOSAL DISCOLOURATION [None]
  - PERIPHERAL COLDNESS [None]
  - SKIN DISCOLOURATION [None]
  - SKIN WARM [None]
  - SNORING [None]
